FAERS Safety Report 9272652 (Version 1)
Quarter: 2013Q2

REPORT INFORMATION
  Report Type: Spontaneous
  Country: US (occurrence: US)
  Receive Date: 20130506
  Receipt Date: 20130506
  Transmission Date: 20140414
  Serious: Yes (Other)
  Sender: FDA-Public Use
  Company Number: US-TEVA-401825USA

PATIENT
  Sex: Female

DRUGS (2)
  1. AMOXICILLIN W/CLAVULANIC ACID TEVA [Suspect]
     Dosage: 875/125MG
  2. ALIGN [Concomitant]

REACTIONS (3)
  - Haemorrhage [Unknown]
  - Oesophagitis [Unknown]
  - Pruritus [Unknown]
